FAERS Safety Report 9924841 (Version 1)
Quarter: 2014Q1

REPORT INFORMATION
  Report Type: Spontaneous
  Country: US (occurrence: None)
  Receive Date: 20140224
  Receipt Date: 20140224
  Transmission Date: 20141002
  Serious: Yes (Hospitalization, Disabling)
  Sender: FDA-Public Use
  Company Number: None

PATIENT
  Age: 74 Year
  Sex: Female
  Weight: 75.3 kg

DRUGS (3)
  1. METHYLPREDNISONE [Suspect]
     Indication: ARTHRALGIA
     Route: 048
     Dates: start: 20131221, end: 20131221
  2. METHYLPREDNISONE [Suspect]
     Indication: CHONDROPATHY
     Route: 048
     Dates: start: 20131221, end: 20131221
  3. LEVETIRACETAM [Suspect]
     Indication: CONVULSION PROPHYLAXIS
     Route: 048
     Dates: start: 20131225, end: 20140220

REACTIONS (12)
  - Convulsion [None]
  - Cerebrovascular accident [None]
  - Thrombosis [None]
  - Gait disturbance [None]
  - Pain [None]
  - Pruritus [None]
  - Pruritus [None]
  - Pruritus [None]
  - Anger [None]
  - Depression [None]
  - Crying [None]
  - Weight increased [None]
